FAERS Safety Report 10821783 (Version 1)
Quarter: 2015Q1

REPORT INFORMATION
  Report Type: Report from Study
  Country: US (occurrence: US)
  Receive Date: 20150218
  Receipt Date: 20150218
  Transmission Date: 20150721
  Serious: No
  Sender: FDA-Public Use
  Company Number: US-ABBVIE-14K-163-1304345-00

PATIENT
  Age: 41 Year
  Sex: Female

DRUGS (2)
  1. HUMIRA [Suspect]
     Active Substance: ADALIMUMAB
     Indication: RHEUMATOID ARTHRITIS
     Dosage: FIRST DOSE ONLY
     Route: 065
     Dates: start: 20141026, end: 20141026
  2. KLONOPIN [Concomitant]
     Active Substance: CLONAZEPAM
     Indication: ANXIETY

REACTIONS (7)
  - Anxiety [Recovered/Resolved]
  - Hallucination, auditory [Recovering/Resolving]
  - Feeling abnormal [Recovering/Resolving]
  - Mood swings [Recovering/Resolving]
  - Confusional state [Recovering/Resolving]
  - Feeling jittery [Recovering/Resolving]
  - Disorientation [Recovering/Resolving]

NARRATIVE: CASE EVENT DATE: 20141026
